FAERS Safety Report 7194331-2 (Version None)
Quarter: 2010Q4

REPORT INFORMATION
  Report Type: 
  Country: None (occurrence: None)
  Receive Date: 20101223
  Receipt Date: 20101213
  Transmission Date: 20110411
  Serious: Yes (Hospitalization)
  Sender: FDA-Public Use
  Company Number: US-ELI_LILLY_AND_COMPANY-US201010005869

PATIENT
  Sex: Male
  Weight: 131.52 kg

DRUGS (1)
  1. ZYPREXA RELPREVV [Suspect]
     Indication: SCHIZOPHRENIA, PARANOID TYPE
     Dosage: 300 MG, UNKNOWN
     Route: 030
     Dates: start: 20100915

REACTIONS (2)
  - DRUG INEFFECTIVE [None]
  - IMPULSIVE BEHAVIOUR [None]
